FAERS Safety Report 10439454 (Version 1)
Quarter: 2014Q3

REPORT INFORMATION
  Report Type: Spontaneous
  Country: US (occurrence: US)
  Receive Date: 20140908
  Receipt Date: 20140908
  Transmission Date: 20150326
  Serious: No
  Sender: FDA-Public Use
  Company Number: US-BRISTOL-MYERS SQUIBB COMPANY-20627469

PATIENT
  Age: 68 Year
  Sex: Female
  Weight: 103.4 kg

DRUGS (5)
  1. LITHIUM [Concomitant]
     Active Substance: LITHIUM CARBONATE
  2. LEVOTHYROXINE [Concomitant]
     Active Substance: LEVOTHYROXINE
  3. ABILIFY [Suspect]
     Active Substance: ARIPIPRAZOLE
  4. CITALOPRAM [Concomitant]
     Active Substance: CITALOPRAM HYDROBROMIDE
  5. OMEPRAZOLE. [Concomitant]
     Active Substance: OMEPRAZOLE

REACTIONS (2)
  - Insomnia [Unknown]
  - Musculoskeletal stiffness [Unknown]
